FAERS Safety Report 20428544 (Version 1)
Quarter: 2022Q1

REPORT INFORMATION
  Report Type: Spontaneous
  Country: US (occurrence: US)
  Receive Date: 20220204
  Receipt Date: 20220204
  Transmission Date: 20220423
  Serious: Yes (Other)
  Sender: FDA-Public Use
  Company Number: US-SUN PHARMACEUTICAL INDUSTRIES LTD-2022R1-324879

PATIENT
  Age: 86 Year
  Sex: Female

DRUGS (4)
  1. IBUPROFEN [Suspect]
     Active Substance: IBUPROFEN
     Indication: Upper respiratory tract infection
     Dosage: 800 MILLIGRAM, QID
     Route: 065
  2. IBUPROFEN [Suspect]
     Active Substance: IBUPROFEN
     Dosage: 800 MILLIGRAM, TID
     Route: 065
  3. PREDNISONE [Suspect]
     Active Substance: PREDNISONE
     Indication: Respiratory tract infection
     Dosage: 40 MILLIGRAM, DAILY
     Route: 065
  4. DEXAMETHASONE [Suspect]
     Active Substance: DEXAMETHASONE
     Indication: Respiratory tract infection
     Dosage: 8 MILLIGRAM, TID
     Route: 042

REACTIONS (1)
  - Therapy partial responder [Unknown]
